FAERS Safety Report 19439540 (Version 1)
Quarter: 2021Q2

REPORT INFORMATION
  Report Type: Spontaneous
  Country: US (occurrence: US)
  Receive Date: 20210618
  Receipt Date: 20210618
  Transmission Date: 20210717
  Serious: Yes (Hospitalization, Other)
  Sender: FDA-Public Use
  Company Number: US-LEADINGPHARMA-US-2021LEALIT00192

PATIENT
  Age: 18 Year
  Sex: Female

DRUGS (13)
  1. AMLODIPINE [Suspect]
     Active Substance: AMLODIPINE BESYLATE
     Indication: PRODUCT USED FOR UNKNOWN INDICATION
     Route: 048
  2. CALCIUM GLUCONATE. [Interacting]
     Active Substance: CALCIUM GLUCONATE
     Indication: HYPOTENSION
     Route: 065
  3. METHYLENE BLUE. [Interacting]
     Active Substance: METHYLENE BLUE
     Indication: SUPPORTIVE CARE
     Route: 065
  4. ANGIOTENSIN II [Interacting]
     Active Substance: ANGIOTENSIN II
     Indication: SUPPORTIVE CARE
     Dosage: 40 NG/KG/MIN
     Route: 065
  5. HYDROCHLOROTHIAZIDE. [Suspect]
     Active Substance: HYDROCHLOROTHIAZIDE
     Indication: PRODUCT USED FOR UNKNOWN INDICATION
     Route: 048
  6. CARVEDILOL. [Suspect]
     Active Substance: CARVEDILOL
     Indication: PRODUCT USED FOR UNKNOWN INDICATION
     Dosage: 30 TABLETS
     Route: 048
  7. NITROUS OXIDE. [Interacting]
     Active Substance: NITROUS OXIDE
     Indication: SUPPORTIVE CARE
     Dosage: 2 MG/KG/HOUR
     Route: 065
  8. VASOPRESSIN. [Interacting]
     Active Substance: VASOPRESSIN
     Indication: SUPPORTIVE CARE
     Dosage: 2.4 UNITS/MIN
     Route: 065
  9. CALCIUM GLUCONATE. [Interacting]
     Active Substance: CALCIUM GLUCONATE
     Indication: TACHYCARDIA
  10. NOREPINEPHRINE. [Interacting]
     Active Substance: NOREPINEPHRINE
     Indication: SUPPORTIVE CARE
     Dosage: 0.45 MCG/KG/ MIN
     Route: 065
  11. PHENYLEPHRINE [Interacting]
     Active Substance: PHENYLEPHRINE HYDROCHLORIDE
     Indication: SUPPORTIVE CARE
     Route: 065
  12. PROPOFOL. [Interacting]
     Active Substance: PROPOFOL
     Indication: SUPPORTIVE CARE
     Route: 065
  13. FUROSEMIDE. [Suspect]
     Active Substance: FUROSEMIDE
     Indication: PRODUCT USED FOR UNKNOWN INDICATION
     Route: 048

REACTIONS (4)
  - Overdose [None]
  - Cardiogenic shock [Recovered/Resolved]
  - Toxicity to various agents [Recovered/Resolved]
  - Distributive shock [Recovered/Resolved]
